FAERS Safety Report 4850678-3 (Version None)
Quarter: 2005Q4

REPORT INFORMATION
  Report Type: 
  Country: None (occurrence: None)
  Receive Date: 20051208
  Receipt Date: 20051128
  Transmission Date: 20060501
  Serious: Yes (Other)
  Sender: FDA-Public Use
  Company Number: US016435

PATIENT
  Age: 48 Year
  Sex: Male

DRUGS (3)
  1. PROVIGIL [Suspect]
     Indication: SOMNOLENCE
     Dosage: 200 MG QD ORAL
     Route: 048
     Dates: start: 20050925, end: 20051101
  2. TRAMADOL HCL [Concomitant]
  3. DICYCLOMINE [Concomitant]

REACTIONS (2)
  - EPILEPSY [None]
  - NUCLEAR MAGNETIC RESONANCE IMAGING BRAIN ABNORMAL [None]
